FAERS Safety Report 21891904 (Version 1)
Quarter: 2023Q1

REPORT INFORMATION
  Report Type: Spontaneous
  Country: CN (occurrence: None)
  Receive Date: 20230120
  Receipt Date: 20230120
  Transmission Date: 20230418
  Serious: Yes (Hospitalization)
  Sender: FDA-Public Use
  Company Number: 2023A012124

PATIENT
  Age: 26584 Day
  Sex: Male
  Weight: 67 kg

DRUGS (1)
  1. OSIMERTINIB [Suspect]
     Active Substance: OSIMERTINIB
     Indication: Tumour treating fields therapy
     Route: 048
     Dates: start: 20221111, end: 20230105

REACTIONS (4)
  - Palpitations [Recovering/Resolving]
  - Fatigue [Unknown]
  - Hypoaesthesia [Unknown]
  - Electrocardiogram ST segment abnormal [Unknown]

NARRATIVE: CASE EVENT DATE: 20221215
